FAERS Safety Report 16918372 (Version 1)
Quarter: 2019Q4

REPORT INFORMATION
  Report Type: Spontaneous
  Country: FR (occurrence: FR)
  Receive Date: 20191015
  Receipt Date: 20191015
  Transmission Date: 20200122
  Serious: Yes (Hospitalization)
  Sender: FDA-Public Use
  Company Number: FR-PFIZER INC-2019435648

PATIENT
  Age: 29 Year
  Sex: Female
  Weight: 46 kg

DRUGS (3)
  1. SYNAREL [Suspect]
     Active Substance: NAFARELIN ACETATE
     Indication: CONTROLLED OVARIAN STIMULATION
     Dosage: UNK
     Route: 045
     Dates: start: 20190427, end: 20190529
  2. OVITRELLE [Suspect]
     Active Substance: CHORIOGONADOTROPIN ALFA
     Indication: CONTROLLED OVARIAN STIMULATION
     Dosage: SINGLE
     Route: 058
     Dates: start: 20190529, end: 20190529
  3. MENOPUR [Suspect]
     Active Substance: FOLLITROPIN\LUTEINIZING HORMONE
     Indication: CONTROLLED OVARIAN STIMULATION
     Dosage: 112.5 IU, 1X/DAY
     Route: 058
     Dates: start: 20190519, end: 20190528

REACTIONS (4)
  - Ovarian hyperstimulation syndrome [Recovered/Resolved]
  - Pelvic pain [Recovered/Resolved]
  - Effusion [Recovered/Resolved]
  - Pelvic fluid collection [Recovered/Resolved]

NARRATIVE: CASE EVENT DATE: 20190602
